FAERS Safety Report 9518105 (Version 4)
Quarter: 2014Q4

REPORT INFORMATION
  Report Type: Report from Study
  Country: JP (occurrence: JP)
  Receive Date: 20130912
  Receipt Date: 20141117
  Transmission Date: 20150529
  Serious: Yes (Other)
  Sender: FDA-Public Use
  Company Number: JP-JNJFOC-20130903323

PATIENT
  Age: 41 Year
  Sex: Male
  Weight: 68 kg

DRUGS (9)
  1. PLASTIBASE [Concomitant]
     Indication: PSORIASIS
     Dosage: EXTERNAL USE
     Route: 065
  2. DRENISON [Concomitant]
     Active Substance: FLURANDRENOLIDE
     Indication: PSORIASIS
     Route: 062
  3. STELARA [Suspect]
     Active Substance: USTEKINUMAB
     Indication: PSORIASIS
     Route: 058
     Dates: start: 20130104, end: 20130104
  4. FULMETA [Concomitant]
     Active Substance: MOMETASONE
     Indication: PSORIASIS
     Route: 061
  5. STELARA [Suspect]
     Active Substance: USTEKINUMAB
     Indication: PSORIASIS
     Route: 058
     Dates: start: 20121019, end: 20121019
  6. PROTOPIC [Concomitant]
     Active Substance: TACROLIMUS
     Indication: PSORIASIS
     Route: 061
  7. STELARA [Suspect]
     Active Substance: USTEKINUMAB
     Indication: PSORIASIS
     Route: 058
     Dates: start: 20120706, end: 20120706
  8. STELARA [Suspect]
     Active Substance: USTEKINUMAB
     Indication: PSORIASIS
     Route: 058
     Dates: start: 20120803, end: 20120803
  9. ANTEBATE [Concomitant]
     Active Substance: BETAMETHASONE DIPROPIONATE
     Indication: PSORIASIS
     Route: 061

REACTIONS (1)
  - Squamous cell carcinoma of skin [Recovered/Resolved]

NARRATIVE: CASE EVENT DATE: 20130301
